FAERS Safety Report 7601859-7 (Version None)
Quarter: 2011Q3

REPORT INFORMATION
  Report Type: 
  Country: None (occurrence: None)
  Receive Date: 20110711
  Receipt Date: 20110705
  Transmission Date: 20111222
  Serious: Yes (Other)
  Sender: FDA-Public Use
  Company Number: US-PFIZER INC-US-WYE-H03173908

PATIENT
  Sex: Female
  Weight: 73 kg

DRUGS (7)
  1. PREMPRO [Suspect]
     Dosage: 0.625/5MG
     Route: 048
     Dates: start: 19981101, end: 20020801
  2. PREMARIN [Suspect]
     Indication: HORMONE REPLACEMENT THERAPY
     Dosage: UNK
     Dates: start: 20010101
  3. NEXIUM [Concomitant]
     Dosage: UNK
     Dates: start: 20010101
  4. LIBRAX [Concomitant]
     Dosage: UNK
  5. ZIAC [Concomitant]
     Indication: BLOOD PRESSURE
     Dosage: 5 MG, UNK
     Dates: start: 19990101
  6. PREMPRO [Suspect]
     Indication: HORMONE REPLACEMENT THERAPY
     Dosage: 0.625/2.5MG
     Route: 048
     Dates: start: 19971101, end: 19981101
  7. PREMPRO [Suspect]
     Dosage: 0.625/2.5MG
     Dates: start: 20020901, end: 20040301

REACTIONS (1)
  - BREAST CANCER FEMALE [None]
